FAERS Safety Report 4358075-4 (Version None)
Quarter: 2004Q2

REPORT INFORMATION
  Report Type: 
  Country: None (occurrence: None)
  Receive Date: 20040510
  Receipt Date: 20040427
  Transmission Date: 20050107
  Serious: Yes (Hospitalization)
  Sender: FDA-Public Use
  Company Number: US-JNJFOC-20040405864

PATIENT
  Age: 66 Year
  Sex: Female
  Weight: 88.4514 kg

DRUGS (15)
  1. INFLIXIMAB (INFLIXIMAB, RECOMBINANT) LYOPHILIZED POWDER [Suspect]
     Indication: RHEUMATOID ARTHRITIS
     Dosage: INTRAVENOUS
     Route: 042
     Dates: start: 20030626
  2. METHOTREXATE [Concomitant]
  3. NEXIUM [Concomitant]
  4. TYLENOL [Concomitant]
  5. ATENOLOL [Concomitant]
  6. FUROSEMIDE [Concomitant]
  7. DIGOXIN [Concomitant]
  8. PREMARIN [Concomitant]
  9. FOLIC ACID [Concomitant]
  10. SULFASALAZINE [Concomitant]
  11. PREDNISONE [Concomitant]
  12. CALCIUM (CALCIUIM) [Concomitant]
  13. MULTIVITAMIN  (MULTIVITAMINS) [Concomitant]
  14. VITAMIN E [Concomitant]
  15. VITAMIN C (ASCORBIC ACID) [Concomitant]

REACTIONS (1)
  - ATRIAL FIBRILLATION [None]
